FAERS Safety Report 13987463 (Version 1)
Quarter: 2017Q3

REPORT INFORMATION
  Report Type: Spontaneous
  Country: HU (occurrence: HU)
  Receive Date: 20170919
  Receipt Date: 20170919
  Transmission Date: 20171128
  Serious: Yes (Other)
  Sender: FDA-Public Use
  Company Number: HU-PFIZER INC-2017400100

PATIENT
  Age: 68 Year

DRUGS (1)
  1. SUTENT [Suspect]
     Active Substance: SUNITINIB MALATE
     Indication: RENAL CANCER
     Dosage: 50 MG, CYCLIC, ACCORDING TO THE 4/2 SCHEMA
     Dates: start: 20160120

REACTIONS (8)
  - Pain in extremity [Unknown]
  - Red blood cell count decreased [Unknown]
  - Dysstasia [Unknown]
  - Constipation [Unknown]
  - Decreased appetite [Unknown]
  - Asthenia [Unknown]
  - Haemoglobin decreased [Unknown]
  - Muscular weakness [Unknown]
